FAERS Safety Report 9112803 (Version 1)
Quarter: 2013Q1

REPORT INFORMATION
  Report Type: Spontaneous
  Country: FR (occurrence: FR)
  Receive Date: 20130211
  Receipt Date: 20130211
  Transmission Date: 20140127
  Serious: Yes (Hospitalization)
  Sender: FDA-Public Use
  Company Number: FR-ASTRAZENECA-2013SE00665

PATIENT
  Age: 76 Year
  Sex: Female

DRUGS (4)
  1. INEXIUM [Suspect]
     Route: 048
     Dates: start: 20100615
  2. SEROPLEX [Interacting]
     Route: 048
     Dates: start: 20110502, end: 20110523
  3. LANTUS [Concomitant]
     Indication: TYPE 2 DIABETES MELLITUS
     Dates: start: 2009
  4. ATENOLOL [Concomitant]
     Indication: HYPERTENSION
     Dates: start: 2009

REACTIONS (2)
  - Inhibitory drug interaction [Recovered/Resolved]
  - Rectal haemorrhage [Recovered/Resolved]
